FAERS Safety Report 4398846-1 (Version None)
Quarter: 2004Q2

REPORT INFORMATION
  Report Type: 
  Country: None (occurrence: None)
  Receive Date: 20040621
  Receipt Date: 20031015
  Transmission Date: 20050107
  Serious: Yes (Death)
  Sender: FDA-Public Use
  Company Number: USA-2003-0007536

PATIENT
  Age: 58 Year
  Sex: Female
  Weight: 71.7 kg

DRUGS (4)
  1. OXYCODONE HCL [Suspect]
  2. ACETAMINOPHEN [Suspect]
     Dosage: UNK MG
  3. CLOMIPRAMINE HCL [Suspect]
     Dosage: UNK MG
  4. DIAZEPAM [Suspect]
     Dosage: UNK MG

REACTIONS (2)
  - INTENTIONAL OVERDOSE [None]
  - MULTIPLE DRUG OVERDOSE [None]
